FAERS Safety Report 8900404 (Version 1)
Quarter: 2012Q4

REPORT INFORMATION
  Report Type: 
  Country: US (occurrence: US)
  Receive Date: 20121108
  Receipt Date: 20121108
  Transmission Date: 20130627
  Serious: No
  Sender: FDA-Public Use
  Company Number: US-AMGEN-USASP2012037782

PATIENT
  Sex: Female
  Weight: 70.3 kg

DRUGS (7)
  1. ENBREL [Suspect]
     Indication: PRODUCT USED FOR UNKNOWN INDICATION
     Dosage: 50 mg, qwk
     Route: 058
  2. PREMARIN [Concomitant]
     Dosage: 1.25 mg, UNK
  3. GLUCOPHAGE [Concomitant]
     Dosage: 500 mg, UNK
  4. QUINAPRIL [Concomitant]
     Dosage: 40 mg, UNK
  5. ACTOS [Concomitant]
     Dosage: 15 mg, UNK
  6. BENADRYL                           /00000402/ [Concomitant]
     Dosage: Spray 2-0.1 %
  7. FOLIC ACID [Concomitant]
     Dosage: 20 mg, UNK

REACTIONS (2)
  - Muscle spasms [Unknown]
  - Injection site pruritus [Unknown]
